FAERS Safety Report 9019164 (Version 7)
Quarter: 2014Q3

REPORT INFORMATION
  Report Type: Report from Study
  Country: BR (occurrence: BR)
  Receive Date: 20130118
  Receipt Date: 20140706
  Transmission Date: 20150326
  Serious: Yes (Other)
  Sender: FDA-Public Use
  Company Number: PHHY2012BR116149

PATIENT
  Age: 41 Year
  Sex: Female
  Weight: 48 kg

DRUGS (21)
  1. EXJADE [Suspect]
     Active Substance: DEFERASIROX
     Dosage: 1000 MG, DAILY
     Route: 048
  2. TRAMAL [Concomitant]
     Active Substance: TRAMADOL
     Indication: PAIN
     Dosage: 50 MG, BID
  3. TEGRETOL CR [Concomitant]
     Active Substance: CARBAMAZEPINE
     Indication: CEREBROVASCULAR ACCIDENT
     Dosage: 1 DF, DAILY
     Route: 048
     Dates: start: 2011
  4. EXJADE [Suspect]
     Active Substance: DEFERASIROX
     Dosage: 3 DF (500 MG), DAILY
     Route: 048
     Dates: start: 2013
  5. EXJADE [Suspect]
     Active Substance: DEFERASIROX
     Dosage: 2 DF (500 MG), DAILY
     Route: 048
     Dates: end: 201304
  6. DIPYRON [Concomitant]
     Indication: PAIN
     Dosage: 500 MG, 3 TABLET WHEN IT WAS NECESARY
  7. FLUNARIZINE [Concomitant]
     Active Substance: FLUNARIZINE
     Indication: MIGRAINE
     Dosage: UNK UKN, 1 TABLET
     Route: 048
  8. EXJADE [Suspect]
     Active Substance: DEFERASIROX
     Indication: SICKLE CELL ANAEMIA
     Dosage: 3 DF (500 MG), DAILY
     Route: 048
     Dates: end: 201212
  9. EXJADE [Suspect]
     Active Substance: DEFERASIROX
     Dosage: 1 DF (500 MG), DAILY
     Route: 048
     Dates: start: 20140525, end: 20140525
  10. HYDREA [Concomitant]
     Active Substance: HYDROXYUREA
     Dosage: UNK UKN, UNK
  11. PLASIL [Concomitant]
     Active Substance: METOCLOPRAMIDE HYDROCHLORIDE
     Dosage: UNK UKN, UNK
  12. VERTIGEN [Concomitant]
     Dosage: UNK UKN, UNK
  13. EXJADE [Suspect]
     Active Substance: DEFERASIROX
     Dosage: 500 MG, DAILY
     Route: 048
  14. CARBAMAZEPINE. [Concomitant]
     Active Substance: CARBAMAZEPINE
     Dosage: UNK UKN, UNK
  15. VERTIX [Concomitant]
     Indication: HEADACHE
     Dosage: 10 MG, 1 TAB AT NIGHT
  16. CLONAZEPAM. [Concomitant]
     Active Substance: CLONAZEPAM
     Indication: EPILEPSY
     Dosage: 0.5 DF
     Route: 048
  17. EXJADE [Suspect]
     Active Substance: DEFERASIROX
     Dosage: 1750 MG, DAILY
     Route: 048
  18. EXJADE [Suspect]
     Active Substance: DEFERASIROX
     Dosage: 1 DF (250 MG), DAILY
     Route: 048
     Dates: start: 2013
  19. FOLIC ACID. [Concomitant]
     Active Substance: FOLIC ACID
     Indication: SICKLE CELL ANAEMIA
     Dosage: 5 MG, UNK
  20. CODEINE [Concomitant]
     Active Substance: CODEINE
     Indication: PAIN
     Dosage: 60 MG, 2 TAB
  21. PHENYTOIN. [Concomitant]
     Active Substance: PHENYTOIN
     Indication: CEREBROVASCULAR ACCIDENT
     Dosage: 100 MG, 3 TIMES PER DAY
     Route: 048
     Dates: start: 2012

REACTIONS (32)
  - Abdominal distension [Unknown]
  - Weight abnormal [Recovering/Resolving]
  - Chest pain [Unknown]
  - Memory impairment [Unknown]
  - Hearing impaired [Unknown]
  - Drug intolerance [Unknown]
  - Abdominal pain upper [Recovering/Resolving]
  - Malaise [Unknown]
  - Chest discomfort [Recovering/Resolving]
  - Fatigue [Unknown]
  - Pruritus [Recovering/Resolving]
  - Periorbital oedema [Recovering/Resolving]
  - Serum ferritin increased [Recovering/Resolving]
  - Decreased appetite [Not Recovered/Not Resolved]
  - Cerebrovascular accident [Recovering/Resolving]
  - Hepatic siderosis [Unknown]
  - Hepatomegaly [Unknown]
  - Gastritis [Unknown]
  - Urethral pain [Not Recovered/Not Resolved]
  - Visual impairment [Unknown]
  - Abdominal discomfort [Recovering/Resolving]
  - Asthenia [Unknown]
  - Nausea [Not Recovered/Not Resolved]
  - Disturbance in attention [Unknown]
  - Dyspnoea [Recovering/Resolving]
  - Burning sensation [Recovering/Resolving]
  - Hypophagia [Unknown]
  - Dyspepsia [Recovering/Resolving]
  - Hypersensitivity [Unknown]
  - Mass [Recovering/Resolving]
  - Back pain [Unknown]
  - Eyelid oedema [Not Recovered/Not Resolved]

NARRATIVE: CASE EVENT DATE: 2012
